FAERS Safety Report 9629920 (Version 1)
Quarter: 2013Q4

REPORT INFORMATION
  Report Type: Spontaneous
  Country: NL (occurrence: NL)
  Receive Date: 20131017
  Receipt Date: 20131017
  Transmission Date: 20140711
  Serious: Yes (Hospitalization)
  Sender: FDA-Public Use
  Company Number: NL-TEVA-436596ISR

PATIENT
  Age: 80 Year
  Sex: Female

DRUGS (7)
  1. METFORMIN [Suspect]
     Indication: TYPE 2 DIABETES MELLITUS
     Dosage: 1500 MILLIGRAM DAILY;
     Route: 048
     Dates: start: 2006, end: 20130323
  2. PREDNISOLONE [Interacting]
     Indication: CHRONIC OBSTRUCTIVE PULMONARY DISEASE
     Dosage: 30 MILLIGRAM DAILY;
     Route: 048
     Dates: start: 201303
  3. BISOPROLOL W/HYDROCHLOROTHIAZIDE [Interacting]
     Indication: SUPRAVENTRICULAR TACHYCARDIA
     Dosage: 2.5 MILLIGRAM DAILY;
     Route: 048
     Dates: start: 2011
  4. ATROVENT AEROSOL 20MCG/DO SPBS 200DO + INHALATOR [Concomitant]
     Dosage: 2 DOSAGE FORMS DAILY; TWICE DAILY ONE
     Route: 055
  5. TOLBUTAMIDE TABLET  500MG [Concomitant]
     Dosage: 1000 MILLIGRAM DAILY;
     Route: 048
  6. VERAPAMIL TABLET MGA 240MG [Concomitant]
     Dosage: 240 MILLIGRAM DAILY;
     Route: 048
  7. OXAZEPAM TABLET 10MG [Concomitant]
     Dosage: 10 MILLIGRAM DAILY;
     Route: 048

REACTIONS (2)
  - Lactic acidosis [Recovered/Resolved]
  - Drug interaction [Recovered/Resolved]
